FAERS Safety Report 9791805 (Version 3)
Quarter: 2014Q1

REPORT INFORMATION
  Report Type: Spontaneous
  Country: CH (occurrence: CH)
  Receive Date: 20140102
  Receipt Date: 20140225
  Transmission Date: 20141002
  Serious: Yes (Hospitalization, Other)
  Sender: FDA-Public Use
  Company Number: CH-JNJFOC-20131216978

PATIENT
  Sex: Male
  Weight: 86 kg

DRUGS (5)
  1. XARELTO [Suspect]
     Indication: THROMBOSIS PROPHYLAXIS
     Route: 048
     Dates: end: 20131218
  2. XARELTO [Suspect]
     Indication: ANKLE OPERATION
     Route: 048
     Dates: end: 20131218
  3. CLEXANE [Suspect]
     Indication: PRODUCT USED FOR UNKNOWN INDICATION
     Dosage: 40 MG/0.4 ML
     Route: 065
  4. DAFALGAN [Concomitant]
     Route: 048
  5. TILUR [Concomitant]
     Route: 065
     Dates: start: 20131218

REACTIONS (8)
  - Hepatitis [Unknown]
  - Hepatic steatosis [Unknown]
  - Alanine aminotransferase increased [Unknown]
  - Aspartate aminotransferase increased [Unknown]
  - Gastroenteritis [Unknown]
  - Liver disorder [Unknown]
  - Haemochromatosis [Unknown]
  - Hypersplenism [Unknown]
